FAERS Safety Report 7732517-6 (Version None)
Quarter: 2011Q3

REPORT INFORMATION
  Report Type: 
  Country: None (occurrence: None)
  Receive Date: 20110906
  Receipt Date: 20110901
  Transmission Date: 20111222
  Serious: Yes (Death)
  Sender: FDA-Public Use
  Company Number: US-AMGEN-USASP2011018553

PATIENT
  Age: 84 Year
  Sex: Male

DRUGS (2)
  1. NPLATE [Suspect]
     Dates: start: 20110301
  2. NPLATE [Suspect]
     Indication: IDIOPATHIC THROMBOCYTOPENIC PURPURA
     Dosage: 345 MUG, QWK
     Dates: start: 20110301, end: 20110406

REACTIONS (1)
  - DEATH [None]
